FAERS Safety Report 15269361 (Version 1)
Quarter: 2018Q3

REPORT INFORMATION
  Report Type: Spontaneous
  Country: FR (occurrence: FR)
  Receive Date: 20180813
  Receipt Date: 20180813
  Transmission Date: 20181010
  Serious: Yes (Death)
  Sender: FDA-Public Use
  Company Number: FR-ROCHE-2169048

PATIENT
  Age: 82 Year
  Sex: Female
  Weight: 61 kg

DRUGS (2)
  1. RITUXIMAB. [Suspect]
     Active Substance: RITUXIMAB
     Indication: RENAL VASCULITIS
     Dosage: DATE OF LAST DOSE 17/JUL/2018
     Route: 041
     Dates: start: 20180627
  2. CORTANCYL [Concomitant]
     Active Substance: PREDNISONE
     Route: 065

REACTIONS (3)
  - Septic shock [Fatal]
  - Multiple organ dysfunction syndrome [Fatal]
  - Pneumonia klebsiella [Fatal]

NARRATIVE: CASE EVENT DATE: 20180718
